FAERS Safety Report 9183433 (Version 2)
Quarter: 2014Q1

REPORT INFORMATION
  Report Type: Spontaneous
  Country: US (occurrence: US)
  Receive Date: 20130322
  Receipt Date: 20140318
  Transmission Date: 20141002
  Serious: No
  Sender: FDA-Public Use
  Company Number: US-BRISTOL-MYERS SQUIBB COMPANY-17312695

PATIENT
  Age: 75 Year
  Sex: Female
  Weight: 74.83 kg

DRUGS (2)
  1. ERBITUX [Suspect]
     Indication: PANCREATIC CARCINOMA
     Dosage: 11 MONTHS NO INF;2
  2. OXALIPLATIN [Suspect]

REACTIONS (4)
  - Blood sodium decreased [Unknown]
  - Blood potassium decreased [Unknown]
  - Asthenia [Unknown]
  - Muscle spasms [Unknown]
